FAERS Safety Report 4743900-5 (Version None)
Quarter: 2005Q3

REPORT INFORMATION
  Report Type: 
  Country: None (occurrence: None)
  Receive Date: 20050809
  Receipt Date: 20050804
  Transmission Date: 20060218
  Serious: Yes (Hospitalization)
  Sender: FDA-Public Use
  Company Number: FRWYE729509JUN05

PATIENT
  Age: 30 Year
  Sex: Female

DRUGS (7)
  1. EFFEXOR [Suspect]
     Indication: DEPRESSION
     Dosage: SEE IMAGE
     Route: 048
     Dates: start: 19960101, end: 20050101
  2. EFFEXOR [Suspect]
     Indication: DEPRESSION
     Dosage: SEE IMAGE
     Route: 048
     Dates: start: 20050101
  3. HUMALOG [Suspect]
  4. LANTUS [Suspect]
     Indication: DIABETES MELLITUS
     Dosage: 22 IU 1X PER 1 DAY
  5. LEVOTHYROXINE SODIUM [Suspect]
     Indication: HYPOTHYROIDISM
  6. DOLIPRANE (PARACETAMOL) [Concomitant]
  7. FERROUS SULFATE TAB [Concomitant]

REACTIONS (5)
  - ABORTION EARLY [None]
  - DRUG EXPOSURE DURING PREGNANCY [None]
  - DRUG WITHDRAWAL SYNDROME [None]
  - PREGNANCY [None]
  - SUICIDAL IDEATION [None]
